FAERS Safety Report 7161468-3 (Version None)
Quarter: 2010Q4

REPORT INFORMATION
  Report Type: 
  Country: None (occurrence: None)
  Receive Date: 20101215
  Receipt Date: 20101203
  Transmission Date: 20110411
  Serious: Yes (Death, Hospitalization, Other)
  Sender: FDA-Public Use
  Company Number: JP-CELGENEUS-087-21880-10110874

PATIENT
  Sex: Female
  Weight: 42.8 kg

DRUGS (6)
  1. REVLIMID [Suspect]
     Indication: MULTIPLE MYELOMA
     Route: 048
     Dates: start: 20100821, end: 20100831
  2. REVLIMID [Suspect]
     Route: 048
     Dates: start: 20100915, end: 20100925
  3. LENADEX [Suspect]
     Indication: MULTIPLE MYELOMA
     Dosage: 12MG (MORNING), 8MG (EVENING)
     Route: 048
     Dates: start: 20100821, end: 20100828
  4. LENADEX [Suspect]
     Dosage: 12MG (MORNING), 8MG (EVENING)
     Route: 048
     Dates: start: 20100915, end: 20100925
  5. LIPITOR [Concomitant]
     Route: 048
     Dates: start: 20100821, end: 20100925
  6. ASPIRIN [Concomitant]
     Indication: PROPHYLAXIS
     Route: 048
     Dates: start: 20100902, end: 20100924

REACTIONS (6)
  - BLOOD URIC ACID INCREASED [None]
  - CONDITION AGGRAVATED [None]
  - MULTIPLE MYELOMA [None]
  - PLATELET COUNT DECREASED [None]
  - RENAL FAILURE [None]
  - TUMOUR LYSIS SYNDROME [None]
